FAERS Safety Report 9812969 (Version 2)
Quarter: 2014Q1

REPORT INFORMATION
  Report Type: Spontaneous
  Country: GB (occurrence: None)
  Receive Date: 20140108
  Receipt Date: 20140326
  Transmission Date: 20141002
  Serious: Yes (Other)
  Sender: FDA-Public Use
  Company Number: 2013374439

PATIENT
  Age: 69 Year
  Sex: Female
  Weight: 80 kg

DRUGS (2)
  1. DALTEPARIN SODIUM [Suspect]
     Dates: start: 20131021, end: 20131108
  2. IRBESARTAN (IRBESARTAN) [Concomitant]

REACTIONS (1)
  - Injection site pain [None]
